FAERS Safety Report 10692533 (Version 1)
Quarter: 2015Q1

REPORT INFORMATION
  Report Type: Spontaneous
  Country: US (occurrence: None)
  Receive Date: 20150105
  Receipt Date: 20150105
  Transmission Date: 20150720
  Serious: Yes (Hospitalization)
  Sender: FDA-Public Use
  Company Number: None

PATIENT
  Age: 50 Year
  Sex: Male
  Weight: 148.33 kg

DRUGS (10)
  1. MAGNESIUM [Suspect]
     Active Substance: MAGNESIUM
     Indication: COGNITIVE DISORDER
     Route: 048
     Dates: start: 20141208
  2. PRILOSEC [Concomitant]
     Active Substance: OMEPRAZOLE MAGNESIUM
  3. SIMVASTATIN. [Concomitant]
     Active Substance: SIMVASTATIN
  4. COGENTIN [Concomitant]
     Active Substance: BENZTROPINE MESYLATE
  5. METFORMIN [Concomitant]
     Active Substance: METFORMIN HYDROCHLORIDE
  6. MOTRIN [Concomitant]
     Active Substance: IBUPROFEN
  7. LISINOPRIL. [Concomitant]
     Active Substance: LISINOPRIL
  8. DEPAKOTE [Concomitant]
     Active Substance: DIVALPROEX SODIUM
  9. CLOZAPINE. [Concomitant]
     Active Substance: CLOZAPINE
  10. MAGNESIUM [Suspect]
     Active Substance: MAGNESIUM
     Indication: SCHIZOPHRENIA
     Route: 048
     Dates: start: 20141208

REACTIONS (5)
  - Agitation [None]
  - Tangentiality [None]
  - Flight of ideas [None]
  - Concomitant disease aggravated [None]
  - Psychotic disorder [None]

NARRATIVE: CASE EVENT DATE: 20141218
